FAERS Safety Report 6104544-6 (Version None)
Quarter: 2009Q1

REPORT INFORMATION
  Report Type: 
  Country: None (occurrence: None)
  Receive Date: 20090305
  Receipt Date: 20090225
  Transmission Date: 20090719
  Serious: Yes (Other)
  Sender: FDA-Public Use
  Company Number: CA-JNJCH-2009005386

PATIENT
  Age: 17 Year
  Sex: Male

DRUGS (1)
  1. REACTINE ALLERGY + SINUS [Suspect]
     Indication: DRUG USE FOR UNKNOWN INDICATION
     Dosage: TEXT:ONE TABLET DAILY - TWO TOTAL
     Route: 048

REACTIONS (1)
  - CONVULSION [None]
